FAERS Safety Report 9709881 (Version 1)
Quarter: 2013Q4

REPORT INFORMATION
  Report Type: Spontaneous
  Country: US (occurrence: US)
  Receive Date: 20131126
  Receipt Date: 20131126
  Transmission Date: 20140711
  Serious: No
  Sender: FDA-Public Use
  Company Number: US-PFIZER INC-2013336324

PATIENT
  Age: 62 Year
  Sex: Male
  Weight: 72.56 kg

DRUGS (5)
  1. TOVIAZ [Suspect]
     Indication: HYPERTONIC BLADDER
     Dosage: 4 MG, DAILY
     Dates: start: 20131121
  2. TOVIAZ [Suspect]
     Indication: MICTURITION URGENCY
  3. NISOLDIPINE [Concomitant]
     Indication: HYPERTENSION
     Dosage: 17 MG, DAILY
  4. LOTENSIN [Concomitant]
     Indication: HYPERTENSION
     Dosage: 20 MG, DAILY
  5. HYDROCHLOROTHIAZIDE [Concomitant]
     Indication: HYPERTENSION
     Dosage: 12.5 MG, 1X/DAY

REACTIONS (3)
  - Gastric disorder [Not Recovered/Not Resolved]
  - Abdominal distension [Not Recovered/Not Resolved]
  - Nausea [Not Recovered/Not Resolved]
